FAERS Safety Report 6157550-X (Version None)
Quarter: 2009Q2

REPORT INFORMATION
  Report Type: 
  Country: None (occurrence: None)
  Receive Date: 20090416
  Receipt Date: 20090401
  Transmission Date: 20091009
  Serious: Yes (Life-Threatening)
  Sender: FDA-Public Use
  Company Number: DE-GENENTECH-280974

PATIENT
  Sex: Male

DRUGS (1)
  1. MABTHERA [Suspect]
     Indication: B-CELL LYMPHOMA

REACTIONS (1)
  - INTERSTITIAL LUNG DISEASE [None]
